FAERS Safety Report 6421343-6 (Version None)
Quarter: 2009Q4

REPORT INFORMATION
  Report Type: 
  Country: None (occurrence: None)
  Receive Date: 20091030
  Receipt Date: 20091019
  Transmission Date: 20100525
  Serious: Yes (Other)
  Sender: FDA-Public Use
  Company Number: PHHY2009DE45732

PATIENT
  Sex: Male

DRUGS (2)
  1. RASILEZ [Suspect]
     Dosage: 300 MG, UNK
     Route: 048
  2. RASILEZ [Suspect]
     Dosage: 150 MG, UNK
     Route: 048

REACTIONS (1)
  - RENAL COLIC [None]
